FAERS Safety Report 10009477 (Version 1)
Quarter: 2014Q1

REPORT INFORMATION
  Report Type: Spontaneous
  Country: US (occurrence: US)
  Receive Date: 20140312
  Receipt Date: 20140312
  Transmission Date: 20141002
  Serious: No
  Sender: FDA-Public Use
  Company Number: US-INCYTE CORPORATION-2012IN001802

PATIENT
  Age: 79 Year
  Sex: Female

DRUGS (1)
  1. JAKAFI [Suspect]
     Indication: SPLENOMEGALY
     Dosage: 5 MG, BID
     Route: 048
     Dates: start: 201209

REACTIONS (1)
  - Nausea [Unknown]
